FAERS Safety Report 17156722 (Version 1)
Quarter: 2019Q4

REPORT INFORMATION
  Report Type: Report from Study
  Country: US (occurrence: US)
  Receive Date: 20191216
  Receipt Date: 20191216
  Transmission Date: 20200122
  Serious: Yes (Hospitalization, Other)
  Sender: FDA-Public Use
  Company Number: US-BRISTOL-MYERS SQUIBB COMPANY-BMS-2019-118375

PATIENT
  Age: 65 Year
  Sex: Male
  Weight: 78.7 kg

DRUGS (2)
  1. NIVOLUMAB [Suspect]
     Active Substance: NIVOLUMAB
     Indication: COLON CANCER STAGE IV
     Dosage: 240 MILLIGRAM, Q2WK
     Route: 042
     Dates: start: 20190225, end: 20191111
  2. REGORAFENIB. [Suspect]
     Active Substance: REGORAFENIB
     Indication: COLON CANCER STAGE IV
     Dosage: 40 MILLIGRAM, QD
     Route: 048
     Dates: start: 20190225, end: 20191103

REACTIONS (1)
  - Postoperative wound infection [Unknown]

NARRATIVE: CASE EVENT DATE: 20191206
